FAERS Safety Report 8512650-1 (Version None)
Quarter: 2012Q3

REPORT INFORMATION
  Report Type: 
  Country: None (occurrence: None)
  Receive Date: 20120716
  Receipt Date: 20120710
  Transmission Date: 20120928
  Serious: Yes (Other)
  Sender: FDA-Public Use
  Company Number: CA-TEVA-348142USA

PATIENT
  Age: 81 Year
  Sex: Male

DRUGS (7)
  1. COUMADIN [Concomitant]
  2. PLAVIX [Concomitant]
  3. ALTACE [Concomitant]
  4. METOPROLOL TARTRATE [Suspect]
     Indication: CARDIAC DISORDER
     Dosage: 200 MILLIGRAM;
     Route: 048
  5. METOPROLOL TARTRATE [Suspect]
     Indication: HYPERTENSION
  6. OMEPRAZOLE (PRISOLEC) [Concomitant]
     Dosage: WAS PRESCRIBED BUT HE DOESN'T TAKE OFTEN
  7. LANOXIN [Concomitant]

REACTIONS (1)
  - MACULAR DEGENERATION [None]
